FAERS Safety Report 7244470-2 (Version None)
Quarter: 2011Q1

REPORT INFORMATION
  Report Type: 
  Country: None (occurrence: None)
  Receive Date: 20110125
  Receipt Date: 20110118
  Transmission Date: 20110831
  Serious: Yes (Death, Other)
  Sender: FDA-Public Use
  Company Number: US-PFIZER INC-2011012233

PATIENT
  Sex: Male

DRUGS (11)
  1. PEGINTERFERON ALFA-2A [Suspect]
     Indication: HEPATITIS C VIRUS TEST POSITIVE
     Dosage: UNK
     Dates: start: 20031201
  2. NEUPOGEN [Suspect]
     Indication: HEPATITIS C VIRUS TEST POSITIVE
     Dosage: UNK
  3. BUPROPION [Suspect]
     Indication: HEPATITIS C VIRUS TEST POSITIVE
     Dosage: UNK
  4. PEGASYS [Suspect]
     Indication: HEPATITIS C VIRUS TEST POSITIVE
     Dosage: UNK
     Dates: start: 20031201
  5. REBETOL [Suspect]
     Indication: HEPATITIS C VIRUS TEST POSITIVE
     Dosage: UNK
  6. RIBAVIRIN [Suspect]
     Indication: HEPATITIS C VIRUS TEST POSITIVE
     Dosage: UNK
     Dates: start: 20031201
  7. INTRON A [Suspect]
     Indication: HEPATITIS C VIRUS TEST POSITIVE
     Dosage: UNK
  8. GABAPENTIN [Suspect]
     Indication: HEPATITIS C VIRUS TEST POSITIVE
     Dosage: UNK
  9. PROCRIT [Suspect]
     Indication: HEPATITIS C VIRUS TEST POSITIVE
     Dosage: UNK
  10. EPOGEN [Suspect]
     Indication: HEPATITIS C VIRUS TEST POSITIVE
     Dosage: UNK
  11. REBETRON [Suspect]
     Indication: HEPATITIS C VIRUS TEST POSITIVE
     Dosage: UNK

REACTIONS (12)
  - LARGE INTESTINE PERFORATION [None]
  - PERITONEAL ADHESIONS [None]
  - PERITONITIS [None]
  - ABDOMINAL DISTENSION [None]
  - SCROTAL OEDEMA [None]
  - DEPRESSION [None]
  - SKIN GRAFT FAILURE [None]
  - SKIN ULCER [None]
  - PNEUMONIA ASPIRATION [None]
  - COLLAPSE OF LUNG [None]
  - POST-TRAUMATIC STRESS DISORDER [None]
  - INTESTINAL DILATATION [None]
